FAERS Safety Report 11221319 (Version 1)
Quarter: 2015Q2

REPORT INFORMATION
  Report Type: Spontaneous
  Country: FR (occurrence: FR)
  Receive Date: 20150626
  Receipt Date: 20150626
  Transmission Date: 20150821
  Serious: Yes (Other)
  Sender: FDA-Public Use
  Company Number: FR-BIOGENIDEC-2015BI087357

PATIENT
  Age: 33 Year
  Sex: Female

DRUGS (1)
  1. TYSABRI [Suspect]
     Active Substance: NATALIZUMAB
     Indication: MULTIPLE SCLEROSIS
     Route: 042

REACTIONS (2)
  - Maternal exposure during pregnancy [Recovered/Resolved]
  - Abortion [Unknown]

NARRATIVE: CASE EVENT DATE: 2013
